FAERS Safety Report 7053103-X (Version None)
Quarter: 2010Q4

REPORT INFORMATION
  Report Type: 
  Country: None (occurrence: None)
  Receive Date: 20101020
  Receipt Date: 20100323
  Transmission Date: 20110411
  Serious: Yes (Hospitalization)
  Sender: FDA-Public Use
  Company Number: US-BAYER-201014074NA

PATIENT
  Age: 38 Year
  Sex: Female
  Weight: 88 kg

DRUGS (8)
  1. YAZ [Suspect]
     Indication: ORAL CONTRACEPTION
     Route: 048
     Dates: start: 20090501, end: 20091026
  2. IMITREX [Concomitant]
     Dates: start: 20080301
  3. MOTRIN [Concomitant]
  4. SYNTHROID [Concomitant]
     Dosage: REFILLED 21-SEP-2009
  5. ASCORBIC ACID [Concomitant]
  6. CALCIUM [Concomitant]
  7. MULTI-VITAMIN [Concomitant]
  8. ASACOL [Concomitant]
     Dosage: UNIT DOSE: 400 MG

REACTIONS (8)
  - BACK PAIN [None]
  - CHEST PAIN [None]
  - COUGH [None]
  - DYSPNOEA [None]
  - HYPOAESTHESIA [None]
  - PNEUMONITIS [None]
  - PULMONARY EMBOLISM [None]
  - PULMONARY INFARCTION [None]
